FAERS Safety Report 6244905-8 (Version None)
Quarter: 2009Q2

REPORT INFORMATION
  Report Type: 
  Country: None (occurrence: None)
  Receive Date: 20090625
  Receipt Date: 20090616
  Transmission Date: 20091009
  Serious: Yes (Hospitalization, Disabling, Other)
  Sender: FDA-Public Use
  Company Number: PHHO2009US06069

PATIENT
  Sex: Female

DRUGS (12)
  1. VOLTAREN [Suspect]
     Indication: PAIN
     Dosage: 50MG, 1X/DAY
     Route: 048
     Dates: start: 20080825, end: 20080910
  2. SUNITINIB MALATE [Suspect]
     Dosage: UNK
     Dates: start: 20080816
  3. ERLOTINIB [Suspect]
     Dosage: UNK
     Dates: start: 20080816
  4. AMITRIPTYLINE HCL [Concomitant]
     Indication: DEPRESSION
  5. ACETAMINOPHEN W/ CODEINE [Concomitant]
     Indication: PAIN
  6. FLUOXETINE HCL [Concomitant]
     Indication: DEPRESSION
  7. ZOLPIDEM TARTRATE [Concomitant]
     Indication: INSOMNIA
  8. AMOXICILLIN AND CLAVULANATE POTASSIUM [Concomitant]
     Indication: INFECTION
  9. TRAMADOL HCL [Concomitant]
     Indication: PAIN
  10. OMEPRAZOLE [Concomitant]
     Indication: PROPHYLAXIS
  11. ENOXAPARIN SODIUM [Concomitant]
     Indication: DEEP VEIN THROMBOSIS
  12. CODEINE [Concomitant]
     Indication: MUSCULOSKELETAL PAIN

REACTIONS (17)
  - BLOOD ALBUMIN DECREASED [None]
  - DIARRHOEA [None]
  - DRUG INTERACTION [None]
  - DYSPEPSIA [None]
  - FAECES DISCOLOURED [None]
  - GASTROENTERITIS [None]
  - HAEMORRHAGE [None]
  - MELAENA [None]
  - MUSCULOSKELETAL PAIN [None]
  - OESOPHAGITIS [None]
  - PLATELET COUNT INCREASED [None]
  - PNEUMONIA [None]
  - PROTEIN TOTAL DECREASED [None]
  - PYREXIA [None]
  - SINUS TACHYCARDIA [None]
  - VOMITING [None]
  - WHITE BLOOD CELL COUNT INCREASED [None]
